FAERS Safety Report 9292917 (Version 1)
Quarter: 2013Q2

REPORT INFORMATION
  Report Type: Report from Study
  Country: US (occurrence: US)
  Receive Date: 20130516
  Receipt Date: 20130516
  Transmission Date: 20140414
  Serious: Yes (Death, Other)
  Sender: FDA-Public Use
  Company Number: US-ABBOTT-13P-163-1090238-00

PATIENT
  Age: 76 Year
  Sex: Male

DRUGS (1)
  1. HUMIRA PEN [Suspect]
     Indication: RHEUMATOID ARTHRITIS
     Route: 058
     Dates: end: 201203

REACTIONS (1)
  - Lung neoplasm malignant [Fatal]
